FAERS Safety Report 21367869 (Version 1)
Quarter: 2022Q3

REPORT INFORMATION
  Report Type: Report from Study
  Country: AR (occurrence: AR)
  Receive Date: 20220923
  Receipt Date: 20220923
  Transmission Date: 20221026
  Serious: Yes (Other)
  Sender: FDA-Public Use
  Company Number: AR-ABBVIE-4128945

PATIENT
  Sex: Female

DRUGS (3)
  1. HUMIRA [Suspect]
     Active Substance: ADALIMUMAB
     Indication: Colitis ulcerative
     Route: 058
     Dates: start: 20220719, end: 2022
  2. Rowasa (Mesalazine) [Concomitant]
     Indication: Product used for unknown indication
  3. Venaliv (Diosmin;Hesperidin methyl chalcone;Vitis vinifera) [Concomitant]
     Indication: Product used for unknown indication

REACTIONS (2)
  - Haemorrhoids [Recovering/Resolving]
  - Thrombosis [Recovering/Resolving]

NARRATIVE: CASE EVENT DATE: 20220101
